FAERS Safety Report 16514464 (Version 3)
Quarter: 2019Q3

REPORT INFORMATION
  Report Type: Report from Study
  Country: AT (occurrence: AT)
  Receive Date: 20190702
  Receipt Date: 20190726
  Transmission Date: 20191004
  Serious: Yes (Hospitalization, Other)
  Sender: FDA-Public Use
  Company Number: AT-PFIZER INC-2019250599

PATIENT
  Age: 53 Year
  Sex: Female
  Weight: 53 kg

DRUGS (37)
  1. COBIMETINIB. [Suspect]
     Active Substance: COBIMETINIB
     Dosage: 20 MG,  (3-0-0)
     Route: 048
     Dates: start: 20190407, end: 20190423
  2. VERTIROSAN [DIMENHYDRINATE] [Suspect]
     Active Substance: DIMENHYDRINATE
     Indication: NAUSEA
     Dosage: 150 MG, 3X/DAY (1-1-1)
     Route: 048
     Dates: end: 20190424
  3. VEMURAFENIB. [Suspect]
     Active Substance: VEMURAFENIB
     Dosage: 240 MG, UNK (3-0-3)
     Route: 048
     Dates: start: 20190607
  4. HYDAL [Suspect]
     Active Substance: HYDROMORPHONE HYDROCHLORIDE
     Indication: PAIN
     Dosage: 2 MG, UNK
     Route: 048
     Dates: start: 20190327, end: 20190409
  5. HYDAL [Suspect]
     Active Substance: HYDROMORPHONE HYDROCHLORIDE
     Dosage: 6 MG, 1X/DAY
     Route: 048
     Dates: start: 20190410, end: 20190424
  6. HYDAL [Suspect]
     Active Substance: HYDROMORPHONE HYDROCHLORIDE
     Dosage: 1.3 MG, AS NEEDED (UP TO 6/DAY)
     Route: 048
     Dates: end: 20190424
  7. CALCIDURAN [Suspect]
     Active Substance: ASCORBIC ACID\CALCIUM PHOSPHATE\CHOLECALCIFEROL\CITRIC ACID MONOHYDRATE
     Dosage: 500 MG, 1X/DAY (800 IE (VITAMIN D3))
     Route: 048
     Dates: start: 201905, end: 201905
  8. CALCIDURAN [Suspect]
     Active Substance: ASCORBIC ACID\CALCIUM PHOSPHATE\CHOLECALCIFEROL\CITRIC ACID MONOHYDRATE
     Dosage: 800 IE (VITAMIN D3)
     Route: 048
     Dates: start: 201905, end: 201905
  9. PRAXITEN [Suspect]
     Active Substance: OXAZEPAM
     Indication: INSOMNIA
     Dosage: 1.05 WHEN NEEDED
     Route: 048
     Dates: start: 20190410, end: 20190417
  10. FORTECORTIN [DEXAMETHASONE] [Suspect]
     Active Substance: DEXAMETHASONE
     Dosage: 4 MG, 1X/DAY
     Route: 048
     Dates: start: 20190503, end: 20190504
  11. ZOFRAN [Suspect]
     Active Substance: ONDANSETRON HYDROCHLORIDE
     Indication: NAUSEA
     Dosage: UNK
     Route: 048
     Dates: start: 20190409, end: 20190409
  12. PASPERTIN [METOCLOPRAMIDE HYDROCHLORIDE] [Suspect]
     Active Substance: METOCLOPRAMIDE HYDROCHLORIDE
     Indication: NAUSEA
     Dosage: 10 MG, UNK
     Route: 048
     Dates: end: 20190409
  13. PASPERTIN [METOCLOPRAMIDE HYDROCHLORIDE] [Suspect]
     Active Substance: METOCLOPRAMIDE HYDROCHLORIDE
     Dosage: 20 MG, 1X/DAY
     Route: 048
     Dates: start: 20190425, end: 20190502
  14. HYDAL [Suspect]
     Active Substance: HYDROMORPHONE HYDROCHLORIDE
     Dosage: 6 MG, AS NEEDED  (UP TO 6/DAY)
     Route: 048
     Dates: start: 20190410, end: 20190424
  15. FORTECORTIN [DEXAMETHASONE] [Suspect]
     Active Substance: DEXAMETHASONE
     Dosage: 4 MG, 1X/DAY
     Route: 048
     Dates: start: 20190426, end: 20190502
  16. HYDAL [Suspect]
     Active Substance: HYDROMORPHONE HYDROCHLORIDE
     Dosage: 2 MG, 1X/DAY (1-0-0)
     Route: 048
     Dates: start: 20190425
  17. COBIMETINIB. [Suspect]
     Active Substance: COBIMETINIB
     Dosage: 20 MG, UNK (3-0-0)
     Route: 048
     Dates: start: 20190425, end: 20190526
  18. DRONABINOL. [Suspect]
     Active Substance: DRONABINOL
     Indication: PAIN
     Dosage: DROPS
     Route: 048
     Dates: start: 20190409, end: 20190409
  19. DRONABINOL. [Suspect]
     Active Substance: DRONABINOL
     Dosage: 3-3-4, DROPS
     Route: 048
     Dates: start: 20190410, end: 20190410
  20. GABAPENTIN. [Suspect]
     Active Substance: GABAPENTIN
     Indication: PAIN
     Dosage: 900 MG, 1X/DAY
     Route: 048
     Dates: start: 20190501, end: 20190501
  21. VEMURAFENIB. [Suspect]
     Active Substance: VEMURAFENIB
     Indication: METASTATIC MALIGNANT MELANOMA
     Dosage: 240 MG, UNK (4-0-4)
     Route: 048
     Dates: start: 20190327
  22. COBIMETINIB. [Suspect]
     Active Substance: COBIMETINIB
     Dosage: 20 MG, UNK (3-0-0)
     Route: 048
     Dates: start: 20190703
  23. DUROTIV [Suspect]
     Active Substance: ESOMEPRAZOLE
     Dosage: 40 MG, 1X/DAY
     Route: 048
     Dates: start: 20190410
  24. GABAPENTIN. [Suspect]
     Active Substance: GABAPENTIN
     Dosage: 300 MG, 1X/DAY
     Route: 048
     Dates: start: 20190502
  25. VEMURAFENIB. [Suspect]
     Active Substance: VEMURAFENIB
     Dosage: 240 MG, UNK (4-0-4)
     Route: 048
     Dates: start: 20190407, end: 20190423
  26. VEMURAFENIB. [Suspect]
     Active Substance: VEMURAFENIB
     Dosage: 240 MG, UNK (3-0-3)
     Route: 048
     Dates: start: 20190425, end: 20190526
  27. VEMURAFENIB. [Suspect]
     Active Substance: VEMURAFENIB
     Dosage: 240 MG, UNK (3-0-3)
     Route: 048
     Dates: start: 20190703
  28. ZYPREXA [Suspect]
     Active Substance: OLANZAPINE
     Indication: MANIA
     Dosage: 5 MG, 1X/DAY
     Route: 048
     Dates: start: 20190410, end: 20190424
  29. COBIMETINIB. [Suspect]
     Active Substance: COBIMETINIB
     Dosage: 20 MG, UNK (2-0-0)
     Route: 048
     Dates: start: 20190607
  30. PRAXITEN [Suspect]
     Active Substance: OXAZEPAM
     Indication: ANXIETY
     Dosage: 15 MG, 1X/DAY (00-1/2)
     Route: 048
     Dates: start: 20190410, end: 20190417
  31. MOLAXOLE [Suspect]
     Active Substance: POLYETHYLENE GLYCOL 3350\POTASSIUM CHLORIDE\SODIUM BICARBONATE\SODIUM CHLORIDE
  32. ATORVASTATIN [Concomitant]
     Active Substance: ATORVASTATIN
     Indication: HYPERLIPIDAEMIA
     Dosage: 40 MG, UNK (0-0-1)
     Route: 048
     Dates: start: 20190528
  33. PASPERTIN [METOCLOPRAMIDE HYDROCHLORIDE] [Suspect]
     Active Substance: METOCLOPRAMIDE HYDROCHLORIDE
     Indication: VOMITING
     Dosage: 30 MG, 1X/DAY
     Route: 048
     Dates: start: 20190410, end: 20190424
  34. COBIMETINIB. [Suspect]
     Active Substance: COBIMETINIB
     Indication: METASTATIC MALIGNANT MELANOMA
     Dosage: 20 MG, UNK (3-0-0)
     Route: 048
     Dates: start: 20190327, end: 2019
  35. PRAXITEN [Suspect]
     Active Substance: OXAZEPAM
     Dosage: 0.5 DF, AS NEEDED
     Route: 048
  36. MOLAXOLE [Suspect]
     Active Substance: POLYETHYLENE GLYCOL 3350\POTASSIUM CHLORIDE\SODIUM BICARBONATE\SODIUM CHLORIDE
     Indication: CONSTIPATION
     Dosage: UNK
     Route: 048
  37. FORTECORTIN [DEXAMETHASONE] [Suspect]
     Active Substance: DEXAMETHASONE
     Indication: PROPHYLAXIS
     Dosage: 8 MG, 1X/DAY
     Route: 048
     Dates: start: 20190408, end: 20190425

REACTIONS (34)
  - Rash [Recovered/Resolved]
  - Alopecia [Recovering/Resolving]
  - Headache [Recovered/Resolved]
  - Discomfort [Recovered/Resolved]
  - General physical health deterioration [Recovered/Resolved]
  - Hyperlipidaemia [Recovering/Resolving]
  - Hypertensive crisis [Recovered/Resolved]
  - Headache [Recovered/Resolved]
  - Vomiting [Recovered/Resolved]
  - Constipation [Recovered/Resolved]
  - Defaecation disorder [Recovered/Resolved]
  - Hypokalaemia [Recovered/Resolved]
  - Vomiting [Recovered/Resolved]
  - Decreased appetite [Recovered/Resolved]
  - Spinal pain [Recovered/Resolved]
  - Nodule [Recovering/Resolving]
  - Oedema [Recovered/Resolved]
  - Abdominal pain upper [Recovered/Resolved]
  - Fatigue [Recovered/Resolved]
  - Anxiety [Recovered/Resolved]
  - Dry mouth [Recovered/Resolved]
  - Feeling hot [Recovered/Resolved]
  - Laboratory test abnormal [Recovering/Resolving]
  - Skin discolouration [Not Recovered/Not Resolved]
  - Diarrhoea [Recovered/Resolved]
  - Hypertonia [Recovering/Resolving]
  - Abdominal pain upper [Recovered/Resolved]
  - Nausea [Recovered/Resolved]
  - Renal function test abnormal [Recovering/Resolving]
  - Anxiety [Recovered/Resolved]
  - Flatulence [Recovered/Resolved]
  - Vertigo [Recovered/Resolved]
  - Liver function test abnormal [Recovering/Resolving]
  - Pancreatic disorder [Recovering/Resolving]

NARRATIVE: CASE EVENT DATE: 20190327
